FAERS Safety Report 4993434-8 (Version None)
Quarter: 2006Q2

REPORT INFORMATION
  Report Type: 
  Country: None (occurrence: None)
  Receive Date: 20060505
  Receipt Date: 20060502
  Transmission Date: 20061013
  Serious: Yes (Death)
  Sender: FDA-Public Use
  Company Number: 2006GB00747

PATIENT
  Sex: Male

DRUGS (2)
  1. ATENOLOL [Suspect]
     Route: 065
  2. NIFEDIPINE [Interacting]
     Route: 065

REACTIONS (2)
  - DEATH [None]
  - DRUG INTERACTION [None]
